FAERS Safety Report 5670013-0 (Version None)
Quarter: 2008Q1

REPORT INFORMATION
  Report Type: 
  Country: None (occurrence: None)
  Receive Date: 20080312
  Receipt Date: 20080228
  Transmission Date: 20080703
  Serious: Yes (Hospitalization)
  Sender: FDA-Public Use
  Company Number: 2008SP004332

PATIENT
  Age: 53 Year
  Sex: Female

DRUGS (4)
  1. TEMODAL [Suspect]
     Indication: GLIOBLASTOMA
     Dosage: 120 MG; QD; PO
     Route: 048
     Dates: start: 20071107, end: 20071118
  2. LAMICTAL [Suspect]
     Indication: CONVULSION
     Dosage: ; PO
     Route: 048
     Dates: start: 20071015, end: 20071118
  3. DEXAMETHASONE [Suspect]
     Indication: CEREBRAL OEDEMA MANAGEMENT
     Dosage: 1 MG; QID; PO
     Route: 048
     Dates: start: 20071105, end: 20071118
  4. PANTOPRAZOLE SODIUM [Suspect]
     Indication: PROPHYLAXIS
     Dosage: 20 MG; QD; PO
     Route: 048
     Dates: start: 20071105, end: 20071118

REACTIONS (2)
  - STEVENS-JOHNSON SYNDROME [None]
  - TOXIC EPIDERMAL NECROLYSIS [None]
